FAERS Safety Report 9519157 (Version 1)
Quarter: 2013Q1

REPORT INFORMATION
  Report Type: Spontaneous
  Country: US (occurrence: None)
  Receive Date: 20130305
  Receipt Date: 20130305
  Transmission Date: 20140127
  Serious: Yes (Hospitalization, Other)
  Sender: FDA-Public Use
  Company Number: 163-21880-12010452

PATIENT
  Age: 86 Year
  Sex: Male
  Weight: 69.4 kg

DRUGS (14)
  1. REVLIMID [Suspect]
     Indication: PLASMA CELL MYELOMA
     Route: 048
     Dates: start: 20111122, end: 20111219
  2. CHLORTHALIDONE (CHLORTHALIDONE) (TABLETS) [Concomitant]
  3. DEXAMETHASONE (DEXAMETHASONE) [Concomitant]
  4. KLOR-CON (POTASSIUM CHLORIDE) (TABLETS) [Concomitant]
  5. OMEPRAZOLE (OMEPRAZOLE) [Concomitant]
  6. VALSARTAN (VALSARTAN) (TABLETS) [Concomitant]
  7. ASPIRIN (ACETYLSALICYLIC ACID) (TABLETS) [Concomitant]
  8. CALCITONIN SALMON (CALCITONIN, SALMON) (NASAL DROPS (INCLUDING NASAL SPRAY) [Concomitant]
  9. FISH OIL (FISH OIL) (CAPSULES) [Concomitant]
  10. FLOMAX (TAMSULOSIN HYDROCHLORIDE) [Concomitant]
  11. FUROSEMIDE (FUROSEMIDE) (TABLETS) [Concomitant]
  12. LOMOTIL (LOMOTIL) (TABLETS) [Concomitant]
  13. MAG OX-CALCIUM-POTASSIUM-E-BILBER (OTHER MINERAL SUPPLEMENTS) (SUSPENSION) [Concomitant]
  14. ZOMETA (ZOLEDRONIC ACID) [Concomitant]

REACTIONS (5)
  - Renal failure acute [None]
  - Platelet count decreased [None]
  - Anaemia [None]
  - Fatigue [None]
  - White blood cell count decreased [None]
